FAERS Safety Report 9282493 (Version 2)
Quarter: 2014Q2

REPORT INFORMATION
  Report Type: Report from Study
  Country: GB (occurrence: GB)
  Receive Date: 20130510
  Receipt Date: 20140507
  Transmission Date: 20141212
  Serious: Yes (Hospitalization)
  Sender: FDA-Public Use
  Company Number: GB-JNJFOC-20130502395

PATIENT
  Age: 62 Year
  Sex: Female

DRUGS (7)
  1. SIMPONI [Suspect]
     Indication: PRODUCT USED FOR UNKNOWN INDICATION
     Route: 058
  2. SIMPONI [Suspect]
     Indication: PRODUCT USED FOR UNKNOWN INDICATION
     Route: 058
     Dates: start: 20130406
  3. LANSOPRAZOLE [Concomitant]
     Route: 065
  4. GLICLAZIDE [Concomitant]
     Route: 065
  5. METFORMIN [Concomitant]
     Dosage: 2G NODE
     Route: 065
  6. FOLIC ACID [Concomitant]
     Dosage: 5 MG 6/7
     Route: 065
  7. VITAMIN D [Concomitant]
     Dosage: 100 U
     Route: 065

REACTIONS (5)
  - Aphasia [Recovering/Resolving]
  - Amnesia [Recovering/Resolving]
  - Headache [Recovering/Resolving]
  - Vomiting [Recovering/Resolving]
  - Musculoskeletal chest pain [Unknown]
